FAERS Safety Report 7014726-7 (Version None)
Quarter: 2010Q3

REPORT INFORMATION
  Report Type: 
  Country: None (occurrence: None)
  Receive Date: 20100927
  Receipt Date: 20100915
  Transmission Date: 20110219
  Serious: Yes (Other)
  Sender: FDA-Public Use
  Company Number: PHHY2010RS51664

PATIENT
  Sex: Male
  Weight: 3.35 kg

DRUGS (4)
  1. TEGRETOL-XR [Suspect]
     Dosage: 600 MG, UNK
     Route: 064
  2. TEGRETOL-XR [Suspect]
     Dosage: 500 MG, DAILY
     Route: 064
  3. VERAPAMIL [Concomitant]
     Dosage: UNK
     Route: 064
  4. VENLAFAXINE HCL [Concomitant]
     Dosage: UNK
     Route: 064

REACTIONS (2)
  - DRUG EXPOSURE DURING PREGNANCY [None]
  - PREMATURE BABY [None]
